FAERS Safety Report 23294792 (Version 3)
Quarter: 2024Q2

REPORT INFORMATION
  Report Type: Report from Study
  Country: CN (occurrence: CN)
  Receive Date: 20231213
  Receipt Date: 20240627
  Transmission Date: 20240716
  Serious: Yes (Hospitalization)
  Sender: FDA-Public Use
  Company Number: CN-BIOGEN-2023BI01239311

PATIENT
  Age: 38 Year
  Sex: Female
  Weight: 30 kg

DRUGS (11)
  1. SPINRAZA [Suspect]
     Active Substance: NUSINERSEN
     Indication: Spinal muscular atrophy
     Route: 050
     Dates: start: 20220211
  2. SPINRAZA [Suspect]
     Active Substance: NUSINERSEN
     Route: 050
     Dates: start: 20220225
  3. SPINRAZA [Suspect]
     Active Substance: NUSINERSEN
     Route: 050
     Dates: start: 20220311
  4. SPINRAZA [Suspect]
     Active Substance: NUSINERSEN
     Route: 050
     Dates: start: 20220425
  5. SPINRAZA [Suspect]
     Active Substance: NUSINERSEN
     Route: 050
     Dates: start: 20220815
  6. SPINRAZA [Suspect]
     Active Substance: NUSINERSEN
     Route: 050
     Dates: start: 20221215
  7. SPINRAZA [Suspect]
     Active Substance: NUSINERSEN
     Route: 050
     Dates: start: 20230414
  8. SPINRAZA [Suspect]
     Active Substance: NUSINERSEN
     Route: 050
     Dates: start: 20240205
  9. SPINRAZA [Suspect]
     Active Substance: NUSINERSEN
     Route: 050
     Dates: start: 20240219
  10. SPINRAZA [Suspect]
     Active Substance: NUSINERSEN
     Route: 050
     Dates: start: 20240617
  11. RISDIPLAM [Suspect]
     Active Substance: RISDIPLAM
     Indication: Spinal muscular atrophy
     Route: 050
     Dates: start: 20230823

REACTIONS (2)
  - Haemolysis [Recovered/Resolved]
  - Scoliosis [Unknown]

NARRATIVE: CASE EVENT DATE: 20230812
